FAERS Safety Report 24019107 (Version 1)
Quarter: 2024Q2

REPORT INFORMATION
  Report Type: Spontaneous
  Country: US (occurrence: None)
  Receive Date: 20240626
  Receipt Date: 20240626
  Transmission Date: 20240715
  Serious: Yes (Other)
  Sender: FDA-Public Use
  Company Number: None

PATIENT
  Age: 56 Year
  Sex: Female
  Weight: 85.5 kg

DRUGS (6)
  1. ESTRADIOL [Suspect]
     Active Substance: ESTRADIOL
     Indication: Menopause
     Dosage: OTHER QUANTITY : 1 PATCH(ES);?FREQUENCY : WEEKLY;?
     Route: 061
     Dates: start: 20231229, end: 20240530
  2. ESTRADIOL [Suspect]
     Active Substance: ESTRADIOL
     Indication: Menopause
     Dosage: OTHER QUANTITY : 1 PACKET OF GEL;?FREQUENCY : DAILY;?
     Route: 061
     Dates: start: 20240614, end: 20240626
  3. HYDROCHLOROTHIAZIDE [Concomitant]
     Active Substance: HYDROCHLOROTHIAZIDE
  4. REPATHA [Concomitant]
     Active Substance: EVOLOCUMAB
  5. ZETIA [Concomitant]
     Active Substance: EZETIMIBE
  6. VITAMIN D [Concomitant]
     Active Substance: VITAMIN D NOS

REACTIONS (13)
  - Eye swelling [None]
  - Eye irritation [None]
  - Ocular hyperaemia [None]
  - Alopecia [None]
  - Back pain [None]
  - Breast tenderness [None]
  - Sinus congestion [None]
  - Dyspnoea [None]
  - Mental impairment [None]
  - Memory impairment [None]
  - Judgement impaired [None]
  - Arthralgia [None]
  - Joint swelling [None]

NARRATIVE: CASE EVENT DATE: 20240405
